FAERS Safety Report 6375836-0 (Version None)
Quarter: 2009Q3

REPORT INFORMATION
  Report Type: 
  Country: None (occurrence: None)
  Receive Date: 20090924
  Receipt Date: 20090917
  Transmission Date: 20100115
  Serious: Yes (Hospitalization, Other)
  Sender: FDA-Public Use
  Company Number: US-ELI_LILLY_AND_COMPANY-US200909004575

PATIENT
  Sex: Female
  Weight: 102.49 kg

DRUGS (13)
  1. BYETTA [Suspect]
     Indication: TYPE 2 DIABETES MELLITUS
     Dosage: 5 UG, 2/D
     Route: 058
     Dates: start: 20090501, end: 20090601
  2. BYETTA [Suspect]
     Dosage: 10 UG, 2/D
     Route: 058
     Dates: start: 20090601, end: 20090703
  3. METFORMIN [Concomitant]
     Indication: TYPE 2 DIABETES MELLITUS
     Dates: end: 20090801
  4. JANUVIA [Concomitant]
     Indication: TYPE 2 DIABETES MELLITUS
     Dosage: 100 MG, DAILY (1/D)
     Route: 048
     Dates: start: 20090801
  5. FLECAINIDE ACETATE [Concomitant]
     Indication: ATRIAL FIBRILLATION
     Dosage: 100 MG, 2/D
     Route: 048
     Dates: start: 20070101
  6. CARTIA XT [Concomitant]
     Indication: ATRIAL FIBRILLATION
     Dosage: 240 MG, DAILY (1/D)
     Route: 048
  7. PROVIGIL [Concomitant]
     Indication: NARCOLEPSY
     Dosage: 200 MG, 2/D
     Route: 048
  8. LASIX [Concomitant]
     Dosage: 20 MG, DAILY (1/D)
     Route: 048
  9. ZOCOR [Concomitant]
     Indication: PROPHYLAXIS
     Dosage: 5 MG, DAILY (1/D)
     Route: 048
  10. COUMADIN [Concomitant]
     Dosage: 5 MG, DAILY (1/D)
     Route: 048
  11. WELLBUTRIN [Concomitant]
     Indication: DEPRESSION
     Dosage: 300 MG, DAILY (1/D)
     Route: 048
     Dates: start: 20080101
  12. PROZAC [Concomitant]
     Indication: DEPRESSION
     Dosage: 40 MG, DAILY (1/D)
     Route: 048
  13. ATIVAN [Concomitant]
     Indication: RESTLESS LEGS SYNDROME
     Dosage: 1 MG, DAILY (1/D)
     Route: 048

REACTIONS (11)
  - ABDOMINAL DISCOMFORT [None]
  - ARTHRITIS [None]
  - DECREASED APPETITE [None]
  - DEPRESSION [None]
  - DIARRHOEA [None]
  - DYSPNOEA [None]
  - FEELING HOT [None]
  - HYPERHIDROSIS [None]
  - MALAISE [None]
  - MENISCUS LESION [None]
  - NAUSEA [None]
